FAERS Safety Report 23694409 (Version 1)
Quarter: 2024Q2

REPORT INFORMATION
  Report Type: Spontaneous
  Country: CA (occurrence: CA)
  Receive Date: 20240401
  Receipt Date: 20240401
  Transmission Date: 20240715
  Serious: Yes (Death, Life-Threatening, Hospitalization, Disabling, Congenital Anomaly, Other)
  Sender: FDA-Public Use
  Company Number: CA-SANDOZ-SDZ2024CA033828

PATIENT
  Age: 40 Year
  Sex: Female
  Weight: 96 kg

DRUGS (99)
  1. ADALIMUMAB [Suspect]
     Active Substance: ADALIMUMAB\ISOPROPYL ALCOHOL
     Dosage: 40 MG
     Route: 057
  2. ADALIMUMAB [Suspect]
     Active Substance: ADALIMUMAB\ISOPROPYL ALCOHOL
     Dosage: 40 MG
     Route: 065
  3. ADALIMUMAB [Suspect]
     Active Substance: ADALIMUMAB\ISOPROPYL ALCOHOL
     Dosage: 40 MG
     Route: 065
  4. ADALIMUMAB [Suspect]
     Active Substance: ADALIMUMAB\ISOPROPYL ALCOHOL
     Indication: Rheumatoid arthritis
     Dosage: 40 MG, CYCLICAL
     Route: 065
  5. ADALIMUMAB [Suspect]
     Active Substance: ADALIMUMAB\ISOPROPYL ALCOHOL
     Dosage: UNK
     Route: 065
  6. ADALIMUMAB [Suspect]
     Active Substance: ADALIMUMAB\ISOPROPYL ALCOHOL
     Dosage: UNK
     Route: 065
  7. ADALIMUMAB [Suspect]
     Active Substance: ADALIMUMAB\ISOPROPYL ALCOHOL
     Dosage: UNK
     Route: 065
  8. ADALIMUMAB [Suspect]
     Active Substance: ADALIMUMAB\ISOPROPYL ALCOHOL
     Dosage: UNK
     Route: 065
  9. ADALIMUMAB [Suspect]
     Active Substance: ADALIMUMAB\ISOPROPYL ALCOHOL
     Dosage: UNK
     Route: 065
  10. ACETAMINOPHEN [Suspect]
     Active Substance: ACETAMINOPHEN
     Dosage: 20 MG
     Route: 065
  11. ACETAMINOPHEN [Suspect]
     Active Substance: ACETAMINOPHEN
     Indication: Rheumatoid arthritis
     Dosage: UNK
     Route: 065
  12. ACETAMINOPHEN [Suspect]
     Active Substance: ACETAMINOPHEN
     Dosage: UNK
     Route: 065
  13. ACETAMINOPHEN [Suspect]
     Active Substance: ACETAMINOPHEN
     Dosage: UNK
     Route: 065
  14. ETANERCEPT [Suspect]
     Active Substance: ETANERCEPT
     Dosage: 10 MG
     Route: 065
  15. ETANERCEPT [Suspect]
     Active Substance: ETANERCEPT
     Dosage: 40 MG
     Route: 058
  16. ETANERCEPT [Suspect]
     Active Substance: ETANERCEPT
     Indication: Rheumatoid arthritis
     Dosage: 50 MG
     Route: 058
  17. ETANERCEPT [Suspect]
     Active Substance: ETANERCEPT
     Dosage: 50 MG
     Route: 058
  18. ETANERCEPT [Suspect]
     Active Substance: ETANERCEPT
     Dosage: 50 MG
     Route: 058
  19. ETANERCEPT [Suspect]
     Active Substance: ETANERCEPT
     Dosage: 50 MG
     Route: 065
  20. ETANERCEPT [Suspect]
     Active Substance: ETANERCEPT
     Dosage: UNK
     Route: 058
  21. ETANERCEPT [Suspect]
     Active Substance: ETANERCEPT
     Dosage: UNK
     Route: 058
  22. ETANERCEPT [Suspect]
     Active Substance: ETANERCEPT
     Dosage: UNK
     Route: 065
  23. ETANERCEPT [Suspect]
     Active Substance: ETANERCEPT
     Dosage: UNK
     Route: 065
  24. FOLIC ACID [Suspect]
     Active Substance: FOLIC ACID
     Dosage: 0.5 MG
     Route: 048
  25. FOLIC ACID [Suspect]
     Active Substance: FOLIC ACID
     Dosage: 1 MG
     Route: 058
  26. FOLIC ACID [Suspect]
     Active Substance: FOLIC ACID
     Dosage: 25 MG
     Route: 048
  27. FOLIC ACID [Suspect]
     Active Substance: FOLIC ACID
     Dosage: 500 MG
     Route: 048
  28. FOLIC ACID [Suspect]
     Active Substance: FOLIC ACID
     Indication: Rheumatoid arthritis
     Dosage: UNK
     Route: 065
  29. HYDROCORTISONE [Suspect]
     Active Substance: HYDROCORTISONE
     Indication: Rheumatoid arthritis
     Dosage: UNK
     Route: 065
  30. METHOTREXATE SODIUM [Suspect]
     Active Substance: METHOTREXATE SODIUM
     Dosage: 1 MG
     Route: 048
  31. METHOTREXATE SODIUM [Suspect]
     Active Substance: METHOTREXATE SODIUM
     Dosage: 15 MG, QW
     Route: 058
  32. METHOTREXATE SODIUM [Suspect]
     Active Substance: METHOTREXATE SODIUM
     Dosage: 20 MG, QW
     Route: 048
  33. METHOTREXATE SODIUM [Suspect]
     Active Substance: METHOTREXATE SODIUM
     Dosage: 20 MG, BID
     Route: 048
  34. METHOTREXATE SODIUM [Suspect]
     Active Substance: METHOTREXATE SODIUM
     Dosage: 225 MG
     Route: 065
  35. METHOTREXATE SODIUM [Suspect]
     Active Substance: METHOTREXATE SODIUM
     Dosage: 25 MG, QW
     Route: 048
  36. METHOTREXATE SODIUM [Suspect]
     Active Substance: METHOTREXATE SODIUM
     Dosage: 25 MG, QW
     Route: 048
  37. METHOTREXATE SODIUM [Suspect]
     Active Substance: METHOTREXATE SODIUM
     Dosage: 25 MG, QW
     Route: 048
  38. METHOTREXATE SODIUM [Suspect]
     Active Substance: METHOTREXATE SODIUM
     Dosage: 25 MG, QW
     Route: 048
  39. METHOTREXATE SODIUM [Suspect]
     Active Substance: METHOTREXATE SODIUM
     Dosage: 25 MG, QW
     Route: 058
  40. METHOTREXATE SODIUM [Suspect]
     Active Substance: METHOTREXATE SODIUM
     Dosage: 25 MG
     Route: 014
  41. METHOTREXATE SODIUM [Suspect]
     Active Substance: METHOTREXATE SODIUM
     Dosage: 25 MG
     Route: 014
  42. METHOTREXATE SODIUM [Suspect]
     Active Substance: METHOTREXATE SODIUM
     Dosage: 25 MG
     Route: 014
  43. METHOTREXATE SODIUM [Suspect]
     Active Substance: METHOTREXATE SODIUM
     Dosage: 25 MG
     Route: 065
  44. METHOTREXATE SODIUM [Suspect]
     Active Substance: METHOTREXATE SODIUM
     Dosage: 25 MG
     Route: 065
  45. METHOTREXATE SODIUM [Suspect]
     Active Substance: METHOTREXATE SODIUM
     Dosage: 40 MG, QW
     Route: 048
  46. METHOTREXATE SODIUM [Suspect]
     Active Substance: METHOTREXATE SODIUM
     Dosage: 50 MG, BID
     Route: 048
  47. METHOTREXATE SODIUM [Suspect]
     Active Substance: METHOTREXATE SODIUM
     Dosage: UNK
     Route: 016
  48. METHOTREXATE SODIUM [Suspect]
     Active Substance: METHOTREXATE SODIUM
     Dosage: UNK
     Route: 048
  49. METHOTREXATE SODIUM [Suspect]
     Active Substance: METHOTREXATE SODIUM
     Dosage: UNK
     Route: 048
  50. METHOTREXATE SODIUM [Suspect]
     Active Substance: METHOTREXATE SODIUM
     Indication: Rheumatoid arthritis
     Dosage: UNK
     Route: 058
  51. METHOTREXATE SODIUM [Suspect]
     Active Substance: METHOTREXATE SODIUM
     Dosage: UNK
     Route: 065
  52. PHENYLEPHRINE HYDROCHLORIDE [Suspect]
     Active Substance: PHENYLEPHRINE HYDROCHLORIDE
     Indication: Rheumatoid arthritis
     Dosage: 10 MG
     Route: 065
  53. RITUXIMAB [Suspect]
     Active Substance: RITUXIMAB
     Dosage: 1000 MG, QD
     Route: 065
  54. RITUXIMAB [Suspect]
     Active Substance: RITUXIMAB
     Dosage: 1000 MG, 2 EVERY DAY
     Route: 065
  55. RITUXIMAB [Suspect]
     Active Substance: RITUXIMAB
     Dosage: 2 G, QD
     Route: 040
  56. RITUXIMAB [Suspect]
     Active Substance: RITUXIMAB
     Dosage: 2 G, QD
     Route: 040
  57. RITUXIMAB [Suspect]
     Active Substance: RITUXIMAB
     Dosage: 2 G, QD
     Route: 040
  58. RITUXIMAB [Suspect]
     Active Substance: RITUXIMAB
     Dosage: 2 G, QD
     Route: 040
  59. RITUXIMAB [Suspect]
     Active Substance: RITUXIMAB
     Dosage: 2000 MG, QD
     Route: 065
  60. RITUXIMAB [Suspect]
     Active Substance: RITUXIMAB
     Dosage: 2000 MG, QD
     Route: 065
  61. RITUXIMAB [Suspect]
     Active Substance: RITUXIMAB
     Dosage: 2000 MG, QD
     Route: 065
  62. RITUXIMAB [Suspect]
     Active Substance: RITUXIMAB
     Dosage: 2000 MG, QD
     Route: 065
  63. RITUXIMAB [Suspect]
     Active Substance: RITUXIMAB
     Dosage: 2000 MG, QD
     Route: 065
  64. RITUXIMAB [Suspect]
     Active Substance: RITUXIMAB
     Dosage: 2000 MG
     Route: 065
  65. RITUXIMAB [Suspect]
     Active Substance: RITUXIMAB
     Dosage: 365 MG
     Route: 065
  66. RITUXIMAB [Suspect]
     Active Substance: RITUXIMAB
     Dosage: 365 MG
     Route: 065
  67. RITUXIMAB [Suspect]
     Active Substance: RITUXIMAB
     Dosage: UNK
     Route: 016
  68. RITUXIMAB [Suspect]
     Active Substance: RITUXIMAB
     Dosage: UNK
     Route: 016
  69. RITUXIMAB [Suspect]
     Active Substance: RITUXIMAB
     Dosage: UNK
     Route: 016
  70. RITUXIMAB [Suspect]
     Active Substance: RITUXIMAB
     Dosage: UNK
     Route: 016
  71. RITUXIMAB [Suspect]
     Active Substance: RITUXIMAB
     Dosage: UNK
     Route: 016
  72. RITUXIMAB [Suspect]
     Active Substance: RITUXIMAB
     Dosage: UNK
     Route: 016
  73. RITUXIMAB [Suspect]
     Active Substance: RITUXIMAB
     Indication: Rheumatoid arthritis
     Dosage: UNK
     Route: 040
  74. RITUXIMAB [Suspect]
     Active Substance: RITUXIMAB
     Dosage: UNK
     Route: 040
  75. RITUXIMAB [Suspect]
     Active Substance: RITUXIMAB
     Dosage: UNK
     Route: 040
  76. RITUXIMAB [Suspect]
     Active Substance: RITUXIMAB
     Dosage: UNK
     Route: 040
  77. RITUXIMAB [Suspect]
     Active Substance: RITUXIMAB
     Dosage: UNK
     Route: 040
  78. RITUXIMAB [Suspect]
     Active Substance: RITUXIMAB
     Dosage: UNK
     Route: 040
  79. RITUXIMAB [Suspect]
     Active Substance: RITUXIMAB
     Dosage: UNK
     Route: 043
  80. RITUXIMAB [Suspect]
     Active Substance: RITUXIMAB
     Dosage: UNK
     Route: 043
  81. RITUXIMAB [Suspect]
     Active Substance: RITUXIMAB
     Dosage: UNK
     Route: 043
  82. RITUXIMAB [Suspect]
     Active Substance: RITUXIMAB
     Dosage: UNK
     Route: 043
  83. RITUXIMAB [Suspect]
     Active Substance: RITUXIMAB
     Dosage: UNK
     Route: 058
  84. RITUXIMAB [Suspect]
     Active Substance: RITUXIMAB
     Dosage: UNK
     Route: 058
  85. RITUXIMAB [Suspect]
     Active Substance: RITUXIMAB
     Dosage: UNK
     Route: 058
  86. RITUXIMAB [Suspect]
     Active Substance: RITUXIMAB
     Dosage: UNK
     Route: 058
  87. RITUXIMAB [Suspect]
     Active Substance: RITUXIMAB
     Dosage: UNK
     Route: 065
  88. RITUXIMAB [Suspect]
     Active Substance: RITUXIMAB
     Dosage: UNK
     Route: 065
  89. THIAMINE HYDROCHLORIDE [Suspect]
     Active Substance: THIAMINE HYDROCHLORIDE
     Indication: Product used for unknown indication
     Dosage: 1 DF
     Route: 065
  90. XELJANZ [Suspect]
     Active Substance: TOFACITINIB CITRATE
     Dosage: 10 MG, QD
     Route: 048
  91. XELJANZ [Suspect]
     Active Substance: TOFACITINIB CITRATE
     Dosage: 10 MG, QD
     Route: 065
  92. XELJANZ [Suspect]
     Active Substance: TOFACITINIB CITRATE
     Dosage: 10 MG, QD
     Route: 065
  93. XELJANZ [Suspect]
     Active Substance: TOFACITINIB CITRATE
     Dosage: 10 MG, 2 EVERY DAY
     Route: 065
  94. XELJANZ [Suspect]
     Active Substance: TOFACITINIB CITRATE
     Dosage: 20 MG, QD
     Route: 048
  95. XELJANZ [Suspect]
     Active Substance: TOFACITINIB CITRATE
     Indication: Rheumatoid arthritis
     Dosage: 5 MG, QD
     Route: 048
  96. XELJANZ [Suspect]
     Active Substance: TOFACITINIB CITRATE
     Dosage: 5 MG
     Route: 065
  97. XELJANZ [Suspect]
     Active Substance: TOFACITINIB CITRATE
     Dosage: 5 MG
     Route: 065
  98. XELJANZ [Suspect]
     Active Substance: TOFACITINIB CITRATE
     Dosage: UNK
     Route: 065
  99. XELJANZ [Suspect]
     Active Substance: TOFACITINIB CITRATE
     Dosage: UNK
     Route: 065

REACTIONS (37)
  - Abdominal distension [Fatal]
  - Back injury [Fatal]
  - Bursitis [Fatal]
  - Coeliac disease [Fatal]
  - Condition aggravated [Fatal]
  - Dyspepsia [Fatal]
  - Fall [Fatal]
  - Finger deformity [Fatal]
  - Folliculitis [Fatal]
  - Gait inability [Fatal]
  - Gastrointestinal disorder [Fatal]
  - Gastrooesophageal reflux disease [Fatal]
  - Grip strength decreased [Fatal]
  - Headache [Fatal]
  - Hepatitis [Fatal]
  - Hypoaesthesia [Fatal]
  - Injury [Fatal]
  - Insomnia [Fatal]
  - Intentional product use issue [Fatal]
  - Liver function test increased [Fatal]
  - Malaise [Fatal]
  - Mobility decreased [Fatal]
  - Muscular weakness [Fatal]
  - Musculoskeletal stiffness [Fatal]
  - Nail disorder [Fatal]
  - Neck pain [Fatal]
  - Off label use [Fatal]
  - Off label use [Fatal]
  - Off label use [Fatal]
  - Off label use [Fatal]
  - Pain in extremity [Fatal]
  - Pneumonia [Fatal]
  - Product label confusion [Fatal]
  - Underdose [Fatal]
  - Weight increased [Fatal]
  - Wheezing [Fatal]
  - Wound infection [Fatal]
